FAERS Safety Report 7915990-X (Version None)
Quarter: 2011Q4

REPORT INFORMATION
  Report Type: 
  Country: None (occurrence: None)
  Receive Date: 20111115
  Receipt Date: 20111108
  Transmission Date: 20120403
  Serious: Yes (Life-Threatening, Hospitalization, Other)
  Sender: FDA-Public Use
  Company Number: US-ASTRAZENECA-2009UW08168

PATIENT
  Age: 53 Year
  Sex: Female
  Weight: 93 kg

DRUGS (12)
  1. BUTROPAN [Concomitant]
     Indication: DEPRESSION
  2. PROTONIX [Concomitant]
  3. PRILOSEC [Suspect]
     Route: 048
  4. ADVAIR DISKUS 100/50 [Concomitant]
     Indication: ASTHMA
     Dosage: 500/50, TWO PUFFS A DAY
  5. SINGULAIR [Concomitant]
     Indication: ASTHMA
  6. ZOLPIDEM [Concomitant]
     Indication: SLEEP DISORDER
  7. ALPRAZOLAM [Concomitant]
     Indication: ANXIETY
  8. ZOPINOX [Concomitant]
     Indication: ASTHMA
  9. NEXIUM [Suspect]
     Route: 048
  10. SYNTHROID [Concomitant]
     Indication: THYROID DISORDER
  11. PROVENTOL [Concomitant]
     Indication: ASTHMA
     Dosage: TWO PUFFS A DAY
  12. LEXAPRO [Concomitant]
     Indication: DEPRESSION

REACTIONS (10)
  - ASTHMA [None]
  - DRUG INEFFECTIVE [None]
  - DRUG DOSE OMISSION [None]
  - COMA [None]
  - GASTROOESOPHAGEAL REFLUX DISEASE [None]
  - HIATUS HERNIA [None]
  - PNEUMONIA [None]
  - MEDICAL INDUCTION OF COMA [None]
  - PERIPHERAL EMBOLISM [None]
  - PULMONARY THROMBOSIS [None]
